FAERS Safety Report 6380940-7 (Version None)
Quarter: 2009Q3

REPORT INFORMATION
  Report Type: 
  Country: None (occurrence: None)
  Receive Date: 20090929
  Receipt Date: 20090928
  Transmission Date: 20100115
  Serious: Yes (Hospitalization)
  Sender: FDA-Public Use
  Company Number: US-GENENTECH-288810

PATIENT
  Sex: Female
  Weight: 123.81 kg

DRUGS (22)
  1. BEVACIZUMAB [Suspect]
     Indication: BREAST CANCER
     Dosage: 10 MG/KG, Q2W
     Route: 042
     Dates: start: 20090211
  2. DOXORUBICIN HCL [Suspect]
     Indication: BREAST CANCER
     Dosage: 60 MG/M2, Q2W
     Route: 042
     Dates: start: 20090227
  3. DOXORUBICIN HCL [Suspect]
     Dosage: 60 MG/M2, Q2W
     Route: 042
     Dates: start: 20090708, end: 20090708
  4. CYCLOPHOSPHAMIDE [Suspect]
     Indication: BREAST CANCER
     Dosage: 600 MG/M2, Q2W
     Route: 042
     Dates: start: 20090227
  5. CYCLOPHOSPHAMIDE [Suspect]
     Dosage: 600 MG/M2, Q2W
     Route: 042
     Dates: start: 20090708, end: 20090708
  6. CARBOPLATIN [Suspect]
     Indication: BREAST CANCER
     Dosage: 6 AUC, Q3W
     Route: 042
     Dates: start: 20090225
  7. ABRAXANE [Suspect]
     Indication: BREAST CANCER
     Dosage: 60 MG/M2, 1/WEEK
     Route: 042
     Dates: start: 20090513
  8. APREPITANT [Concomitant]
     Indication: NAUSEA
     Dosage: UNK
  9. DEXAMETHASONE 4MG TAB [Concomitant]
     Indication: NAUSEA
     Dosage: 10 MG, UNK
     Route: 042
     Dates: start: 20090624, end: 20090624
  10. ZOFRAN [Concomitant]
     Indication: NAUSEA
     Dosage: UNK
     Route: 042
     Dates: start: 20090624, end: 20090624
  11. REGLAN [Concomitant]
     Indication: NAUSEA
     Dosage: 10 MG, SINGLE
     Route: 048
     Dates: start: 20090227
  12. BENADRYL [Concomitant]
     Indication: NAUSEA
     Dosage: 25 MG, SINGLE
     Route: 048
     Dates: start: 20090227
  13. HEPARIN LOCK-FLUSH [Concomitant]
     Indication: DRUG USE FOR UNKNOWN INDICATION
     Dosage: 500 IU, SINGLE
     Route: 050
     Dates: start: 20090624, end: 20090624
  14. HEPARIN LOCK-FLUSH [Concomitant]
     Dosage: 500 IU, SINGLE
     Route: 050
     Dates: start: 20090626, end: 20090626
  15. HEPARIN LOCK-FLUSH [Concomitant]
     Dosage: 500 IU, SINGLE
     Route: 050
     Dates: start: 20090708, end: 20090708
  16. MAGNESIUM SULFATE [Concomitant]
     Indication: DRUG USE FOR UNKNOWN INDICATION
     Dosage: 50 ML, SINGLE
     Route: 042
     Dates: start: 20090624, end: 20090624
  17. MAGNESIUM SULFATE [Concomitant]
     Dosage: 100 ML, SINGLE
     Route: 042
     Dates: start: 20090708, end: 20090708
  18. INTRAVENOUS SOLUTION (UNK INGREDIENTS) [Concomitant]
     Indication: DRUG USE FOR UNKNOWN INDICATION
     Dosage: UNK
     Dates: start: 20090624, end: 20090624
  19. ALTEPLASE [Concomitant]
     Indication: DRUG USE FOR UNKNOWN INDICATION
     Dosage: 2 MG, SINGLE
     Route: 065
     Dates: start: 20090624, end: 20090624
  20. ALTEPLASE [Concomitant]
     Dosage: 2 MG, SINGLE
     Route: 065
     Dates: start: 20090708, end: 20090708
  21. NEULASTA [Concomitant]
     Indication: DRUG USE FOR UNKNOWN INDICATION
     Dosage: 0.6 ML, SINGLE
     Dates: start: 20090625, end: 20090625
  22. NEULASTA [Concomitant]
     Dosage: 0.6 ML, SINGLE
     Dates: start: 20090626, end: 20090627

REACTIONS (1)
  - ANAEMIA [None]
